FAERS Safety Report 4405717-0 (Version None)
Quarter: 2004Q3

REPORT INFORMATION
  Report Type: 
  Country: None (occurrence: None)
  Receive Date: 20040723
  Receipt Date: 20031125
  Transmission Date: 20050211
  Serious: No
  Sender: FDA-Public Use
  Company Number: US-GLAXOSMITHKLINE-A0441087A

PATIENT
  Age: 83 Year
  Sex: Female

DRUGS (10)
  1. AVANDIA [Suspect]
     Dosage: 2MG TWICE PER DAY
     Route: 048
     Dates: start: 19980101
  2. MULTI-VITAMIN [Concomitant]
  3. FUROSEMIDE [Concomitant]
  4. ENALAPRIL MALEATE [Concomitant]
  5. SYNTHROID [Concomitant]
  6. COVERA-HS [Concomitant]
  7. ASPIRIN [Concomitant]
  8. BEXTRA [Concomitant]
  9. LIDODERM PATCH [Concomitant]
  10. INSULIN [Concomitant]

REACTIONS (2)
  - OEDEMA [None]
  - WEIGHT INCREASED [None]
